FAERS Safety Report 8030112-5 (Version None)
Quarter: 2012Q1

REPORT INFORMATION
  Report Type: 
  Country: None (occurrence: None)
  Receive Date: 20120106
  Receipt Date: 20120106
  Transmission Date: 20120608
  Serious: Yes (Hospitalization)
  Sender: FDA-Public Use
  Company Number: None

PATIENT
  Sex: Female
  Weight: 49.1 kg

DRUGS (3)
  1. FLUOROURACIL [Suspect]
     Dosage: 4380 MG
  2. ERBITUX [Suspect]
     Dosage: 365 MG
  3. CISPLATIN [Suspect]
     Dosage: 110 MG

REACTIONS (4)
  - DIARRHOEA [None]
  - ASTHENIA [None]
  - FATIGUE [None]
  - DEHYDRATION [None]
